FAERS Safety Report 9391707 (Version 1)
Quarter: 2013Q3

REPORT INFORMATION
  Report Type: Spontaneous
  Country: IT (occurrence: IT)
  Receive Date: 20130709
  Receipt Date: 20130709
  Transmission Date: 20140515
  Serious: Yes (Hospitalization)
  Sender: FDA-Public Use
  Company Number: PHHY2013IT068653

PATIENT
  Age: 66 Year
  Sex: Male

DRUGS (4)
  1. CYPROTERONE [Suspect]
     Dosage: 200 MG/DAY
     Dates: start: 200902, end: 20090612
  2. PREDNISONE [Suspect]
     Dosage: 60 MG/DAY
  3. PREDNISONE [Suspect]
     Dosage: 20 MG/DAY
  4. PREDNISONE [Suspect]
     Dosage: 10 MG/DAY
     Dates: end: 201002

REACTIONS (9)
  - Fatigue [Recovering/Resolving]
  - Jaundice [Recovering/Resolving]
  - Chromaturia [Recovering/Resolving]
  - Pruritus [Recovering/Resolving]
  - Hepatic necrosis [Recovering/Resolving]
  - Hepatic cirrhosis [Recovering/Resolving]
  - Diabetes mellitus [Unknown]
  - Hyperglycaemia [Unknown]
  - Hepatitis toxic [Recovering/Resolving]
